FAERS Safety Report 6901226-5 (Version None)
Quarter: 2010Q3

REPORT INFORMATION
  Report Type: 
  Country: None (occurrence: None)
  Receive Date: 20100708
  Receipt Date: 20100209
  Transmission Date: 20110219
  Serious: Yes (Other)
  Sender: FDA-Public Use
  Company Number: 2010018868

PATIENT
  Sex: Female
  Weight: 54.4 kg

DRUGS (2)
  1. CHANTIX [Suspect]
     Indication: SMOKING CESSATION THERAPY
     Dosage: 0.5 MG, 1X/DAY, ORAL
     Route: 048
     Dates: start: 20090301
  2. GABAPENTIN [Concomitant]

REACTIONS (3)
  - ANXIETY [None]
  - SUICIDAL IDEATION [None]
  - TENSION [None]
